FAERS Safety Report 19515262 (Version 4)
Quarter: 2021Q3

REPORT INFORMATION
  Report Type: Report from Study
  Country: IN (occurrence: IN)
  Receive Date: 20210709
  Receipt Date: 20210730
  Transmission Date: 20211014
  Serious: Yes (Death)
  Sender: FDA-Public Use
  Company Number: IN-PFIZER INC-2021826615

PATIENT
  Age: 51 Year
  Sex: Male
  Weight: 89 kg

DRUGS (1)
  1. INOTUZUMAB OZOGAMICIN [Suspect]
     Active Substance: INOTUZUMAB OZOGAMICIN
     Indication: B-CELL TYPE ACUTE LEUKAEMIA
     Dosage: 1.2 MG/M2, CYCLIC (ADMINISTERED IN 3 DIVIDED DOSE: DAY 1, DAY 8, DAY15)
     Route: 042
     Dates: start: 20210419, end: 20210602

REACTIONS (1)
  - Death [Fatal]

NARRATIVE: CASE EVENT DATE: 20210624
